FAERS Safety Report 6218528-0 (Version None)
Quarter: 2009Q2

REPORT INFORMATION
  Report Type: 
  Country: None (occurrence: None)
  Receive Date: 20090608
  Receipt Date: 20090603
  Transmission Date: 20091009
  Serious: Yes (Other)
  Sender: FDA-Public Use
  Company Number: JP-JNJFOC-20090506809

PATIENT
  Age: 14 Year
  Sex: Male

DRUGS (10)
  1. RISPERDAL [Suspect]
     Route: 048
  2. RISPERDAL [Suspect]
     Indication: AGGRESSION
     Route: 048
  3. DEPAKENE [Concomitant]
     Route: 048
  4. DEPAKENE [Concomitant]
     Route: 048
  5. L-CARNITINE [Concomitant]
     Route: 048
  6. PHENOBARBITAL TAB [Concomitant]
     Route: 048
  7. PHENOBARBITAL TAB [Concomitant]
     Route: 048
  8. MYSTAN [Concomitant]
     Route: 048
  9. EXCEGRAN [Concomitant]
     Route: 048
  10. THYRADIN S [Concomitant]
     Route: 048

REACTIONS (4)
  - ARACHNOID CYST [None]
  - DYSTONIA [None]
  - EPILEPSY [None]
  - SALIVARY HYPERSECRETION [None]
